FAERS Safety Report 6791023-6 (Version None)
Quarter: 2010Q2

REPORT INFORMATION
  Report Type: 
  Country: None (occurrence: None)
  Receive Date: 20100623
  Receipt Date: 20100623
  Transmission Date: 20101027
  Serious: Yes (Other)
  Sender: FDA-Public Use
  Company Number: None

PATIENT
  Age: 48 Year
  Sex: Female
  Weight: 58.514 kg

DRUGS (2)
  1. LEVAQUIN [Suspect]
     Indication: BRONCHITIS
     Dosage: ONCE DAILY??? PO
     Route: 048
  2. LEVAQUIN [Suspect]
     Indication: SINUSITIS
     Dosage: ONCE DAILY??? PO
     Route: 048

REACTIONS (4)
  - ECONOMIC PROBLEM [None]
  - IMPAIRED WORK ABILITY [None]
  - JOINT SWELLING [None]
  - TENDONITIS [None]
